FAERS Safety Report 9100807 (Version 2)
Quarter: 2013Q2

REPORT INFORMATION
  Report Type: Report from Study
  Country: GB (occurrence: GB)
  Receive Date: 20130215
  Receipt Date: 20130417
  Transmission Date: 20140414
  Serious: Yes (Life-Threatening, Hospitalization)
  Sender: FDA-Public Use
  Company Number: GB-ROCHE-1190498

PATIENT
  Sex: Male
  Weight: 73 kg

DRUGS (6)
  1. TOCILIZUMAB [Suspect]
     Indication: RHEUMATOID ARTHRITIS
     Dosage: DATE OF LAST DOSE PRIOR TO SAE:25/APR/2012
     Route: 065
     Dates: start: 20120130
  2. PREDNISOLONE [Concomitant]
     Route: 048
  3. ALENDRONIC ACID [Concomitant]
     Route: 065
  4. ADCAL-D3 [Concomitant]
     Route: 065
  5. OMEPRAZOLE [Concomitant]
     Route: 065
  6. FYBOGEL [Concomitant]

REACTIONS (3)
  - Deep vein thrombosis [Unknown]
  - Gastrointestinal infection [Unknown]
  - Diverticular perforation [Unknown]
